FAERS Safety Report 25607220 (Version 1)
Quarter: 2025Q3

REPORT INFORMATION
  Report Type: Spontaneous
  Country: EU (occurrence: EU)
  Receive Date: 20250725
  Receipt Date: 20250725
  Transmission Date: 20251021
  Serious: Yes (Other)
  Sender: AMGEN
  Company Number: EU-DCGMA-25205570

PATIENT
  Sex: Female

DRUGS (1)
  1. AIMOVIG [Suspect]
     Active Substance: ERENUMAB-AOOE
     Indication: Migraine
     Route: 065
     Dates: start: 202503

REACTIONS (5)
  - Loss of consciousness [Unknown]
  - Feeling abnormal [Unknown]
  - Accident [Unknown]
  - Dizziness [Unknown]
  - Disorientation [Unknown]

NARRATIVE: CASE EVENT DATE: 20250301
